FAERS Safety Report 7559833-5 (Version None)
Quarter: 2011Q2

REPORT INFORMATION
  Report Type: 
  Country: None (occurrence: None)
  Receive Date: 20110621
  Receipt Date: 20110603
  Transmission Date: 20111010
  Serious: No
  Sender: FDA-Public Use
  Company Number: US-B.I. PHARMACEUTICALS,INC./RIDGEFIELD-2011-BP-14704BP

PATIENT
  Age: 86 Year
  Sex: Male

DRUGS (5)
  1. LOSARTAN POTASSIUM [Concomitant]
     Indication: HYPERTENSION
  2. PRADAXA [Suspect]
     Indication: ATRIAL FIBRILLATION
     Dosage: 300 MG
     Route: 048
     Dates: start: 20110512
  3. AMLODIPINE [Concomitant]
     Indication: HYPERTENSION
  4. METOPROLOL TARTRATE [Concomitant]
     Indication: ATRIAL FIBRILLATION
  5. DIAZIDE [Concomitant]
     Indication: HYPERTENSION

REACTIONS (7)
  - ABDOMINAL DISCOMFORT [None]
  - HICCUPS [None]
  - ASTHENIA [None]
  - WEIGHT DECREASED [None]
  - GASTROOESOPHAGEAL REFLUX DISEASE [None]
  - NAUSEA [None]
  - DECREASED APPETITE [None]
